FAERS Safety Report 7810153-0 (Version None)
Quarter: 2011Q4

REPORT INFORMATION
  Report Type: 
  Country: None (occurrence: None)
  Receive Date: 20111007
  Receipt Date: 20110928
  Transmission Date: 20120403
  Serious: Yes (Hospitalization)
  Sender: FDA-Public Use
  Company Number: DSU-2011-07245

PATIENT
  Age: 86 Year
  Sex: Female
  Weight: 52.1637 kg

DRUGS (4)
  1. LEVOTHYROXINE (LEVOTHYROXINE) (LEVOTHYROXINE) [Concomitant]
  2. NIFEDICAL XL (NIFEDIPINE) (NIFEDIPINE) [Concomitant]
  3. METOPROLOL SUCCINATE [Concomitant]
  4. BENICAR HCT [Suspect]
     Indication: HYPERTENSION
     Dosage: 40/12.5MG (QD) ,PER ORAL
     Route: 048
     Dates: start: 20100801

REACTIONS (2)
  - NEOPLASM MALIGNANT [None]
  - HERPES ZOSTER [None]
